FAERS Safety Report 7505791-9 (Version None)
Quarter: 2011Q2

REPORT INFORMATION
  Report Type: 
  Country: None (occurrence: None)
  Receive Date: 20110526
  Receipt Date: 20110518
  Transmission Date: 20111010
  Serious: Yes (Other)
  Sender: FDA-Public Use
  Company Number: US-US-EMD SERONO, INC.-7053775

PATIENT
  Sex: Female
  Weight: 84 kg

DRUGS (37)
  1. HYOSCYAMINE [Concomitant]
     Dates: start: 20101020
  2. LEVOTHYROXINE SODIUM [Concomitant]
     Dates: start: 20110412
  3. TRICOR [Concomitant]
     Dates: start: 20101020
  4. DIFLUCAN [Concomitant]
     Dates: start: 20101020
  5. ASPIRIN [Concomitant]
     Dates: start: 20110420
  6. CRANBERRRY EXTRACT [Concomitant]
     Dates: start: 20110420
  7. CLONIDINE [Concomitant]
     Dates: start: 20110420
  8. CLOBETASOL PROPIONATE [Concomitant]
     Dates: start: 20110420
  9. NOVOLOG SOLN [Concomitant]
     Dates: start: 20110420
  10. BIRTH CONTROL PILL [Concomitant]
     Dates: start: 19810101
  11. FERROUS SULFATE TAB [Concomitant]
     Dates: start: 20110420
  12. AMITRIPTYLINE HCL [Concomitant]
     Dates: start: 20110420
  13. FELDENE [Concomitant]
     Dates: start: 20091005
  14. FISH OIL [Concomitant]
     Dates: start: 20091005
  15. COENZYME Q10 [Concomitant]
     Dates: start: 20091005
  16. DOCUSATE SODIUM [Concomitant]
     Dates: start: 20101020
  17. REBIF [Suspect]
     Indication: MULTIPLE SCLEROSIS
     Route: 058
     Dates: start: 20050613
  18. VITAMIN D [Concomitant]
     Dates: start: 20091005
  19. TUMRERIC [Concomitant]
     Dates: start: 20101020
  20. ZYRTEC ALLERGY [Concomitant]
     Dates: start: 20101020
  21. EXFORGE [Concomitant]
     Dates: start: 20101020
  22. DIAZEPAM [Concomitant]
     Dates: start: 20101020
  23. LUTEIN [Concomitant]
     Dates: start: 20110420
  24. ALPHA-LIPOIC ACID [Concomitant]
     Dates: start: 20110420
  25. BIOTIN [Concomitant]
     Dates: start: 20110420
  26. NORCO 5/325 [Concomitant]
     Dates: start: 20110420
  27. SIMVASTATIN [Concomitant]
     Dates: start: 20110420
  28. VEXOL [Concomitant]
     Dates: start: 20091005
  29. GRAPESEAD EXTRACT [Concomitant]
     Dates: start: 20110420
  30. GREEN TEA [Concomitant]
     Dates: start: 20091005
  31. CALCIUM CITRATE [Concomitant]
     Dates: start: 20110420
  32. MULTIPLE VITAMIN [Concomitant]
     Dates: start: 20110420
  33. METFORMIN HCL [Concomitant]
     Dates: start: 20091005
  34. LISINOPRIL [Concomitant]
     Dates: start: 20100412
  35. MUPIROCIN 2% [Concomitant]
     Dates: start: 20101020
  36. L-CARNITINE [Concomitant]
     Dates: start: 20110420
  37. LANTUS [Concomitant]
     Dates: start: 20110420

REACTIONS (2)
  - BREAST CANCER IN SITU [None]
  - ALOPECIA [None]
